FAERS Safety Report 13807472 (Version 1)
Quarter: 2017Q3

REPORT INFORMATION
  Report Type: Spontaneous
  Country: GB (occurrence: GB)
  Receive Date: 20170728
  Receipt Date: 20170728
  Transmission Date: 20171127
  Serious: Yes (Hospitalization)
  Sender: FDA-Public Use
  Company Number: GB-TEVA-789523ACC

PATIENT
  Age: 57 Year
  Weight: 85 kg

DRUGS (1)
  1. IBUPROFEN. [Suspect]
     Active Substance: IBUPROFEN
     Indication: BACK PAIN
     Dates: start: 201606, end: 20161207

REACTIONS (3)
  - Lower respiratory tract infection [Recovered/Resolved]
  - Haemoglobin decreased [Recovered/Resolved]
  - Pallor [Recovered/Resolved]
